FAERS Safety Report 25643557 (Version 1)
Quarter: 2025Q3

REPORT INFORMATION
  Report Type: Spontaneous
  Country: US (occurrence: US)
  Receive Date: 20250805
  Receipt Date: 20250805
  Transmission Date: 20251020
  Serious: Yes (Other)
  Sender: HIKMA
  Company Number: US-HIKMA PHARMACEUTICALS-US-H14001-25-08940

PATIENT
  Sex: Female

DRUGS (3)
  1. AMIKACIN [Suspect]
     Active Substance: AMIKACIN
     Indication: Product used for unknown indication
     Route: 042
  2. AZITHROMYCIN [Suspect]
     Active Substance: AZITHROMYCIN
     Indication: Product used for unknown indication
     Route: 065
  3. RIFAMPIN [Suspect]
     Active Substance: RIFAMPIN
     Indication: Product used for unknown indication
     Route: 065

REACTIONS (3)
  - Drug intolerance [Unknown]
  - Cytopenia [Unknown]
  - Deafness [Unknown]
